FAERS Safety Report 13593188 (Version 1)
Quarter: 2017Q2

REPORT INFORMATION
  Report Type: Spontaneous
  Country: GB (occurrence: GB)
  Receive Date: 20170530
  Receipt Date: 20170530
  Transmission Date: 20170830
  Serious: Yes (Hospitalization)
  Sender: FDA-Public Use
  Company Number: GB-TORRENT-00015304

PATIENT
  Age: 87 Year
  Sex: Female

DRUGS (9)
  1. CARBOCISTEINE [Concomitant]
     Active Substance: CARBOCYSTEINE
  2. OMEPRAZOLE. [Concomitant]
     Active Substance: OMEPRAZOLE
  3. PIOGLITAZONE. [Suspect]
     Active Substance: PIOGLITAZONE
  4. TIOTROPIUM [Concomitant]
     Active Substance: TIOTROPIUM
  5. SALBUTAMOL [Concomitant]
     Active Substance: ALBUTEROL
  6. BUMETANIDE. [Concomitant]
     Active Substance: BUMETANIDE
  7. DOCUSATE [Concomitant]
     Active Substance: DOCUSATE
  8. AVEENO [Concomitant]
     Active Substance: DIMETHICONE\HOMOSALATE\OCTINOXATE\OCTISALATE\TITANIUM DIOXIDE
  9. APIXABAN [Concomitant]
     Active Substance: APIXABAN

REACTIONS (8)
  - Dyspnoea [Not Recovered/Not Resolved]
  - Cardiac failure [Not Recovered/Not Resolved]
  - Acute kidney injury [Unknown]
  - Tachycardia [Not Recovered/Not Resolved]
  - Wheezing [Not Recovered/Not Resolved]
  - Tachypnoea [Not Recovered/Not Resolved]
  - Hypotension [Not Recovered/Not Resolved]
  - Pneumonia [Unknown]

NARRATIVE: CASE EVENT DATE: 20170503
